FAERS Safety Report 6939331-X (Version None)
Quarter: 2010Q3

REPORT INFORMATION
  Report Type: 
  Country: None (occurrence: None)
  Receive Date: 20100824
  Receipt Date: 20100811
  Transmission Date: 20110219
  Serious: No
  Sender: FDA-Public Use
  Company Number: US-B.I. PHARMACEUTICALS,INC./RIDGEFIELD-2010-BP-07219BP

PATIENT
  Age: 82 Year
  Sex: Male

DRUGS (7)
  1. SPIRIVA [Suspect]
     Indication: LUNG NEOPLASM MALIGNANT
     Dosage: 18 MCG
     Dates: start: 20100624
  2. SPIRIVA [Suspect]
     Indication: CHRONIC OBSTRUCTIVE PULMONARY DISEASE
  3. ASPIRIN [Concomitant]
     Dosage: 81 MG
     Dates: start: 20080101
  4. LANOXIN [Concomitant]
     Dosage: 0.125 MG
     Dates: start: 20090824
  5. ZOCOR [Concomitant]
     Dosage: 40 MG
     Dates: start: 20100601
  6. LASIX [Concomitant]
     Dosage: 20 MG
     Dates: start: 20080207, end: 20100706
  7. DOXASIN [Concomitant]
     Dosage: 8 MG
     Dates: start: 20090915, end: 20100426

REACTIONS (2)
  - BENIGN PROSTATIC HYPERPLASIA [None]
  - URINARY INCONTINENCE [None]
